FAERS Safety Report 5205761-X (Version None)
Quarter: 2007Q1

REPORT INFORMATION
  Report Type: 
  Country: None (occurrence: None)
  Receive Date: 20070111
  Receipt Date: 20070103
  Transmission Date: 20070707
  Serious: Yes (Hospitalization)
  Sender: FDA-Public Use
  Company Number: GBWYE014603JAN07

PATIENT
  Sex: Female
  Weight: 50 kg

DRUGS (9)
  1. ENBREL [Suspect]
     Indication: RHEUMATOID ARTHRITIS
     Route: 058
     Dates: start: 20030905, end: 20060405
  2. ADCAL [Concomitant]
     Dosage: UNKNOWN
  3. ASPIRIN [Concomitant]
     Dosage: UNKNOWN
  4. RISEDRONATE SODIUM [Concomitant]
     Dosage: UNKNOWN
  5. CO-PROXAMOL [Concomitant]
     Dosage: UNKNOWN
  6. DOVONEX [Concomitant]
     Dosage: UNKNOWN
  7. LISINOPRIL [Concomitant]
     Dosage: UNKNOWN
  8. PREDNISOLONE [Concomitant]
     Dosage: UNKNOWN
  9. CO-AMILOFRUSE [Concomitant]
     Dosage: UNKNOWN

REACTIONS (2)
  - OSTEITIS DEFORMANS [None]
  - URINARY TRACT INFECTION [None]
